FAERS Safety Report 10755587 (Version 5)
Quarter: 2015Q3

REPORT INFORMATION
  Report Type: Report from Study
  Country: US (occurrence: US)
  Receive Date: 20150202
  Receipt Date: 20150909
  Transmission Date: 20151125
  Serious: Yes (Other)
  Sender: FDA-Public Use
  Company Number: US-SA-2014SA080295

PATIENT
  Age: 55 Year
  Sex: Female

DRUGS (2)
  1. AUBAGIO [Suspect]
     Active Substance: TERIFLUNOMIDE
     Indication: MULTIPLE SCLEROSIS
     Route: 048
  2. AUBAGIO [Suspect]
     Active Substance: TERIFLUNOMIDE
     Indication: MULTIPLE SCLEROSIS
     Route: 048
     Dates: start: 20140121, end: 20140519

REACTIONS (8)
  - General physical health deterioration [Unknown]
  - Ill-defined disorder [Unknown]
  - Injury [Unknown]
  - Memory impairment [Unknown]
  - Surgery [Unknown]
  - Unevaluable event [Unknown]
  - Drug dose omission [Unknown]
  - Dysphonia [Unknown]

NARRATIVE: CASE EVENT DATE: 20140528
